FAERS Safety Report 10176430 (Version 1)
Quarter: 2014Q2

REPORT INFORMATION
  Report Type: Spontaneous
  Country: US (occurrence: US)
  Receive Date: 20140516
  Receipt Date: 20140516
  Transmission Date: 20141212
  Serious: Yes (Other)
  Sender: FDA-Public Use
  Company Number: US-PFIZER INC-2014132843

PATIENT
  Age: 23 Month
  Sex: Male
  Weight: 9.98 kg

DRUGS (2)
  1. CHILDREN^S MOTRIN [Suspect]
     Indication: PYREXIA
     Dosage: EVERY 8 HOURS ALTERNATELY
     Route: 048
     Dates: start: 20140430
  2. TYLENOL INFANT ORAL SUSPENSION GRAPE [Suspect]
     Indication: PYREXIA
     Dosage: 2 ML, EVERY 4 HOURS ALTERNATELY
     Route: 048
     Dates: start: 20140430

REACTIONS (5)
  - Loss of consciousness [Recovered/Resolved]
  - Convulsion [Recovered/Resolved]
  - Wrong technique in drug usage process [Unknown]
  - Off label use [Unknown]
  - Drug ineffective [Unknown]
